FAERS Safety Report 19698146 (Version 1)
Quarter: 2021Q3

REPORT INFORMATION
  Report Type: Spontaneous
  Country: PL (occurrence: PL)
  Receive Date: 20210813
  Receipt Date: 20210813
  Transmission Date: 20211014
  Serious: Yes (Other)
  Sender: FDA-Public Use
  Company Number: PL-PFIZER INC-202100997503

PATIENT
  Age: 8 Year
  Sex: Male

DRUGS (2)
  1. CYTARABINE. [Suspect]
     Active Substance: CYTARABINE
     Indication: CHEMOTHERAPY
     Dosage: UNK (LOW DOSES)
  2. THIOGUANINE [Suspect]
     Active Substance: THIOGUANINE
     Indication: CHEMOTHERAPY
     Dosage: UNK

REACTIONS (5)
  - Pericardial effusion [Unknown]
  - Pneumonia [Unknown]
  - Hydrothorax [Unknown]
  - Drug intolerance [Unknown]
  - Acute kidney injury [Unknown]
